FAERS Safety Report 6152787-8 (Version None)
Quarter: 2009Q2

REPORT INFORMATION
  Report Type: 
  Country: None (occurrence: None)
  Receive Date: 20090413
  Receipt Date: 20090408
  Transmission Date: 20091009
  Serious: Yes (Life-Threatening)
  Sender: FDA-Public Use
  Company Number: ES-B.I. PHARMACEUTICALS,INC./RIDGEFIELD-2009-ES-00060ES

PATIENT
  Age: 72 Year
  Sex: Male

DRUGS (5)
  1. UROLOSIN [Suspect]
     Indication: BENIGN PROSTATIC HYPERPLASIA
     Dosage: .4MG
     Route: 048
     Dates: start: 20080517, end: 20080617
  2. EXELON [Suspect]
     Indication: DEMENTIA ALZHEIMER'S TYPE
     Dosage: 12MG
     Route: 048
     Dates: start: 20080515, end: 20080617
  3. OMEPRAZOLE [Concomitant]
     Indication: DEMENTIA ALZHEIMER'S TYPE
     Dosage: 20MG
     Route: 048
  4. DETRUSITOL NEO [Concomitant]
     Dosage: 4MG
     Dates: start: 20080515
  5. TROMALYT [Concomitant]
     Dosage: 300MG
     Route: 048
     Dates: start: 20040101

REACTIONS (2)
  - SINUS BRADYCARDIA [None]
  - SYNCOPE [None]
